FAERS Safety Report 7315750-7 (Version None)
Quarter: 2011Q1

REPORT INFORMATION
  Report Type: 
  Country: None (occurrence: None)
  Receive Date: 20110225
  Receipt Date: 20110117
  Transmission Date: 20110831
  Serious: No
  Sender: FDA-Public Use
  Company Number: US-BAYER-2011-005838

PATIENT
  Sex: Female

DRUGS (1)
  1. MIRENA [Suspect]
     Indication: CONTRACEPTION
     Dosage: 20 MCG/24HR, CONT
     Route: 015
     Dates: start: 20101209

REACTIONS (5)
  - METRORRHAGIA [None]
  - DIZZINESS [None]
  - ABDOMINAL PAIN [None]
  - BACK PAIN [None]
  - MIGRAINE [None]
